FAERS Safety Report 24423480 (Version 1)
Quarter: 2024Q4

REPORT INFORMATION
  Report Type: Report from Study
  Country: US (occurrence: US)
  Receive Date: 20241010
  Receipt Date: 20241010
  Transmission Date: 20250115
  Serious: Yes (Other)
  Sender: MERCK
  Company Number: US-009507513-2410USA002881

PATIENT
  Sex: Female
  Weight: 55.6 kg

DRUGS (19)
  1. SOTATERCEPT [Suspect]
     Active Substance: SOTATERCEPT
     Indication: Pulmonary hypertension
     Dosage: 0.8 MILLILITER, Q3W; STRENGTH: 45MG KIT
     Route: 058
     Dates: start: 2024
  2. NIFEDIPINE [Concomitant]
     Active Substance: NIFEDIPINE
  3. UPTRAVI [Concomitant]
     Active Substance: SELEXIPAG
  4. PROLIA [Concomitant]
     Active Substance: DENOSUMAB
  5. MACITENTAN\TADALAFIL [Concomitant]
     Active Substance: MACITENTAN\TADALAFIL
  6. SERTRALINE HYDROCHLORIDE [Concomitant]
     Active Substance: SERTRALINE HYDROCHLORIDE
  7. IRON [Concomitant]
     Active Substance: IRON
  8. OCUVITE [ASCORBIC ACID;RETINOL;TOCOPHEROL] [Concomitant]
  9. PANTOPRAZOLE [Concomitant]
     Active Substance: PANTOPRAZOLE
  10. BUPROPION HYDROCHLORIDE [Concomitant]
     Active Substance: BUPROPION HYDROCHLORIDE
  11. CELEBREX [Concomitant]
     Active Substance: CELECOXIB
  12. FAMOTIDINE [Concomitant]
     Active Substance: FAMOTIDINE
  13. VITAMIN D3 [Concomitant]
     Active Substance: CHOLECALCIFEROL
  14. VITAMIN B12 [Concomitant]
     Active Substance: CYANOCOBALAMIN
  15. FOLIC ACID [Concomitant]
     Active Substance: FOLIC ACID
  16. ASPIRIN [Concomitant]
     Active Substance: ASPIRIN
  17. COVID-19 VACCINE [Concomitant]
  18. TRAZODONE HCL [Concomitant]
     Active Substance: TRAZODONE HYDROCHLORIDE
  19. REPATHA [Concomitant]
     Active Substance: EVOLOCUMAB

REACTIONS (3)
  - Rectal haemorrhage [Unknown]
  - Limb injury [Unknown]
  - Laboratory test abnormal [Unknown]

NARRATIVE: CASE EVENT DATE: 20240101
